FAERS Safety Report 5269149-8 (Version None)
Quarter: 2007Q1

REPORT INFORMATION
  Report Type: 
  Country: None (occurrence: None)
  Receive Date: 20070319
  Receipt Date: 20070314
  Transmission Date: 20070707
  Serious: Yes (Hospitalization)
  Sender: FDA-Public Use
  Company Number: JP-BOEHRINGER INGELHEIM PHARMACEUTICALS, INC.-2007-BP-00522NB

PATIENT
  Sex: Male
  Weight: 76 kg

DRUGS (8)
  1. AGGRENOX [Suspect]
     Indication: CEREBROVASCULAR ACCIDENT PROPHYLAXIS
     Dosage: 400/50 MG
     Route: 048
     Dates: start: 20060930, end: 20070109
  2. NOVOLIN N [Concomitant]
     Indication: DIABETES MELLITUS
     Route: 058
     Dates: start: 20060713
  3. ALLOPURINOL [Concomitant]
     Indication: HYPERURICAEMIA
     Route: 048
     Dates: start: 20060724
  4. MICARDIS [Concomitant]
     Indication: HYPERTENSION
     Route: 048
     Dates: start: 20060901, end: 20070109
  5. KETOPROFEN [Concomitant]
     Indication: MUSCULOSKELETAL STIFFNESS
     Route: 062
     Dates: start: 20060818, end: 20070109
  6. EBRANTIL (URAPIDIL) [Concomitant]
     Indication: NEUROGENIC BLADDER
     Route: 048
     Dates: start: 20060915
  7. UBRETID [Concomitant]
     Indication: NEUROGENIC BLADDER
     Route: 048
     Dates: start: 20061225
  8. NOVORAPID [Concomitant]
     Indication: DIABETES MELLITUS
     Route: 058
     Dates: start: 20060713

REACTIONS (1)
  - THALAMUS HAEMORRHAGE [None]
